FAERS Safety Report 17239349 (Version 2)
Quarter: 2020Q1

REPORT INFORMATION
  Report Type: Spontaneous
  Country: HK (occurrence: HK)
  Receive Date: 20200106
  Receipt Date: 20200205
  Transmission Date: 20200409
  Serious: Yes (Hospitalization)
  Sender: FDA-Public Use
  Company Number: HK-NXDC-GLE-0058-2019

PATIENT
  Age: 47 Year
  Sex: Female
  Weight: 46 kg

DRUGS (3)
  1. GLIOLAN [Suspect]
     Active Substance: AMINOLEVULINIC ACID HYDROCHLORIDE
     Indication: PHOTODYNAMIC DIAGNOSTIC PROCEDURE
     Dosage: 35 MILLIGRAMS/KG (TOTAL DOSE 1500MG)
     Route: 048
     Dates: start: 20191108, end: 20191108
  2. PROPOFOL. [Concomitant]
     Active Substance: PROPOFOL
     Indication: SEDATION
     Dosage: 20-40 MG AS BOLUS INFUSION
     Route: 040
     Dates: start: 20191108, end: 20191108
  3. LEVETIRACETEM [Concomitant]
     Indication: SEIZURE
     Dosage: 500MG TWICE A DAY VIA ORAL ROUT
     Route: 048
     Dates: start: 20191101, end: 20191224

REACTIONS (4)
  - Lactic acidosis [Recovered/Resolved]
  - Delayed recovery from anaesthesia [Recovered/Resolved]
  - Off label use [Recovered/Resolved]
  - Status epilepticus [Recovered/Resolved]

NARRATIVE: CASE EVENT DATE: 20191108
